FAERS Safety Report 10534909 (Version 1)
Quarter: 2014Q4

REPORT INFORMATION
  Report Type: Spontaneous
  Country: US (occurrence: US)
  Receive Date: 20141022
  Receipt Date: 20141022
  Transmission Date: 20150529
  Serious: No
  Sender: FDA-Public Use
  Company Number: US-ASTRAZENECA-2013SE79264

PATIENT
  Sex: Female

DRUGS (6)
  1. PROBIOTIC [Concomitant]
     Active Substance: PROBIOTICS NOS
  2. ENALAPRIL [Concomitant]
     Active Substance: ENALAPRIL
  3. PROTANPROZOLE [Concomitant]
  4. WELCHOL [Concomitant]
     Active Substance: COLESEVELAM HYDROCHLORIDE
  5. CRESTOR [Suspect]
     Active Substance: ROSUVASTATIN CALCIUM
     Route: 048
  6. METFORMIN [Concomitant]
     Active Substance: METFORMIN HYDROCHLORIDE

REACTIONS (2)
  - Abdominal discomfort [Recovering/Resolving]
  - Abdominal distension [Recovering/Resolving]
